FAERS Safety Report 24664027 (Version 2)
Quarter: 2024Q4

REPORT INFORMATION
  Report Type: Report from Study
  Country: US (occurrence: US)
  Receive Date: 20241126
  Receipt Date: 20241127
  Transmission Date: 20250114
  Serious: Yes (Death, Other)
  Sender: GILEAD
  Company Number: US-GILEAD-2024-0695112

PATIENT
  Sex: Male

DRUGS (9)
  1. AZTREONAM LYSINE [Suspect]
     Active Substance: AZTREONAM LYSINE
     Indication: Pseudomonas infection
     Dosage: 75 MG, TID (INHALE 75 MG VIA ALTERA NEBULIZER THREE TIMES DAILY, 28 DAYS ON 28 DAYS OFF)
     Route: 055
  2. DEXAMETHASONE [Concomitant]
     Active Substance: DEXAMETHASONE
  3. ELIQUIS [Concomitant]
     Active Substance: APIXABAN
  4. CLOPIDOGREL [Concomitant]
     Active Substance: CLOPIDOGREL BISULFATE
  5. PULMICORT TURBUHALER [Concomitant]
     Active Substance: BUDESONIDE
  6. CRESTOR [Concomitant]
     Active Substance: ROSUVASTATIN CALCIUM
  7. IPRATROPIUM BROMIDE AND ALBUTEROL SULFATE [Concomitant]
     Active Substance: ALBUTEROL SULFATE\IPRATROPIUM BROMIDE
  8. SODIUM CHLORIDE [Concomitant]
     Active Substance: SODIUM CHLORIDE
  9. AZITHROMYCIN [Concomitant]
     Active Substance: AZITHROMYCIN

REACTIONS (2)
  - Death [Fatal]
  - Product use in unapproved indication [Unknown]
